FAERS Safety Report 8286573-X (Version None)
Quarter: 2012Q1

REPORT INFORMATION
  Report Type: 
  Country: None (occurrence: None)
  Receive Date: 20120323
  Receipt Date: 20120315
  Transmission Date: 20120608
  Serious: Yes (Other)
  Sender: FDA-Public Use
  Company Number: 2012031483

PATIENT
  Age: 3 Year
  Sex: Male
  Weight: 13.1543 kg

DRUGS (2)
  1. HIZENTRA [Suspect]
     Indication: COMBINED IMMUNODEFICIENCY
     Dosage: (2G 1X/WEEK, 2 GM (10 ML) ON 2 SITES OVER 1 HOUR SUBCUTANEOUS
     Route: 058
  2. ACETAMINOPHEN [Concomitant]

REACTIONS (1)
  - PHARYNGITIS STREPTOCOCCAL [None]
